FAERS Safety Report 7033830-0 (Version None)
Quarter: 2010Q4

REPORT INFORMATION
  Report Type: 
  Country: None (occurrence: None)
  Receive Date: 20101007
  Receipt Date: 20100929
  Transmission Date: 20110411
  Serious: Yes (Death, Life-Threatening, Hospitalization)
  Sender: FDA-Public Use
  Company Number: PHHY2009JP58996

PATIENT
  Sex: Female
  Weight: 32 kg

DRUGS (6)
  1. DIOVAN [Suspect]
     Indication: HYPERTENSION
     Dosage: 40 MG, QD
     Route: 048
     Dates: start: 20080827, end: 20090716
  2. PREDNISOLONE [Concomitant]
     Dosage: 2 MG, UNK
     Route: 048
     Dates: start: 20080622, end: 20090716
  3. RIMATIL [Concomitant]
     Dosage: 200 MG, UNK
     Route: 048
     Dates: start: 20080622, end: 20090716
  4. ASPIRIN [Concomitant]
     Dosage: 100 MG, UNK
     Route: 048
     Dates: start: 20080622, end: 20090716
  5. MOBIC [Concomitant]
     Dosage: 10 MG, UNK
     Route: 048
     Dates: start: 20080622, end: 20090716
  6. FERROMIA [Concomitant]
     Dosage: 200 MG, UNK
     Route: 048
     Dates: start: 20090420, end: 20090716

REACTIONS (3)
  - DUODENAL ULCER [None]
  - IRON DEFICIENCY ANAEMIA [None]
  - PNEUMONIA [None]
